FAERS Safety Report 5489727-0 (Version None)
Quarter: 2007Q4

REPORT INFORMATION
  Report Type: 
  Country: None (occurrence: None)
  Receive Date: 20071018
  Receipt Date: 20071012
  Transmission Date: 20080405
  Serious: Yes (Other)
  Sender: FDA-Public Use
  Company Number: CA-ASTRAZENECA-2007UW23970

PATIENT
  Age: 47 Year
  Sex: Female

DRUGS (2)
  1. SEROQUEL [Suspect]
     Route: 048
  2. ATIVAN [Concomitant]

REACTIONS (7)
  - DEPRESSION [None]
  - FORMICATION [None]
  - INSOMNIA [None]
  - MOOD SWINGS [None]
  - SKIN DISORDER [None]
  - VOMITING [None]
  - WEIGHT DECREASED [None]
